FAERS Safety Report 20427563 (Version 1)
Quarter: 2022Q1

REPORT INFORMATION
  Report Type: Report from Study
  Country: US (occurrence: US)
  Receive Date: 20220204
  Receipt Date: 20220204
  Transmission Date: 20220423
  Serious: No
  Sender: FDA-Public Use
  Company Number: US-EXELIXIS-CABO-21044788

PATIENT
  Sex: Female

DRUGS (4)
  1. CABOMETYX [Suspect]
     Active Substance: CABOZANTINIB S-MALATE
     Indication: Renal cancer
     Dosage: 40 MG, QD
     Route: 048
     Dates: start: 20210909
  2. CABOMETYX [Suspect]
     Active Substance: CABOZANTINIB S-MALATE
     Indication: Metastases to pancreas
     Dosage: 40 MG, QD
     Route: 048
     Dates: start: 20211023
  3. OPDIVO [Suspect]
     Active Substance: NIVOLUMAB
     Indication: Renal cancer
     Dosage: UNK
     Dates: start: 20210909
  4. OPDIVO [Suspect]
     Active Substance: NIVOLUMAB
     Indication: Metastases to pancreas

REACTIONS (4)
  - Loss of consciousness [Recovered/Resolved]
  - Hepatic enzyme increased [Not Recovered/Not Resolved]
  - Nausea [Recovered/Resolved]
  - Constipation [Recovered/Resolved]
